FAERS Safety Report 13630349 (Version 1)
Quarter: 2017Q2

REPORT INFORMATION
  Report Type: Spontaneous
  Country: FR (occurrence: FR)
  Receive Date: 20170608
  Receipt Date: 20170608
  Transmission Date: 20170830
  Serious: Yes (Hospitalization)
  Sender: FDA-Public Use
  Company Number: PHHY2017FR080644

PATIENT
  Age: 64 Year
  Sex: Female

DRUGS (9)
  1. CERTICAN [Suspect]
     Active Substance: EVEROLIMUS
     Dosage: 0.125 MG, BID
     Route: 065
     Dates: start: 20170305
  2. CERTICAN [Suspect]
     Active Substance: EVEROLIMUS
     Dosage: 1.5 DF, QD
     Route: 065
     Dates: start: 20170207
  3. CERTICAN [Suspect]
     Active Substance: EVEROLIMUS
     Dosage: 0.1 MG, BID
     Route: 065
     Dates: start: 20170308
  4. CERTICAN [Suspect]
     Active Substance: EVEROLIMUS
     Indication: HEART TRANSPLANT
     Dosage: UNK
     Route: 065
     Dates: end: 20170126
  5. CERTICAN [Suspect]
     Active Substance: EVEROLIMUS
     Dosage: 0.5 MG, BID
     Route: 048
     Dates: start: 20170224, end: 20170303
  6. CERTICAN [Suspect]
     Active Substance: EVEROLIMUS
     Dosage: 0.2 MG, BID
     Route: 065
     Dates: start: 20170313
  7. VFEND [Suspect]
     Active Substance: VORICONAZOLE
     Indication: BRONCHOPULMONARY ASPERGILLOSIS
     Dosage: 350 MG, BID
     Route: 065
     Dates: start: 20170109
  8. VFEND [Suspect]
     Active Substance: VORICONAZOLE
     Dosage: 200 MG, BID
     Route: 048
     Dates: start: 20170224, end: 20170303
  9. VFEND [Suspect]
     Active Substance: VORICONAZOLE
     Dosage: 100 MG, BID
     Route: 065
     Dates: start: 20170304

REACTIONS (5)
  - Immunosuppressant drug level increased [Recovered/Resolved]
  - Pyrexia [Recovered/Resolved]
  - Renal failure [Recovered/Resolved]
  - Headache [Recovered/Resolved]
  - Gastrointestinal disorder [Recovered/Resolved]

NARRATIVE: CASE EVENT DATE: 20170228
